FAERS Safety Report 10777221 (Version 1)
Quarter: 2015Q1

REPORT INFORMATION
  Report Type: Spontaneous
  Country: US (occurrence: US)
  Receive Date: 20150209
  Receipt Date: 20150209
  Transmission Date: 20150721
  Serious: No
  Sender: FDA-Public Use
  Company Number: US-RECKITT BENCKISER PHARMACEUTICAL, INC-RB-62807-2014

PATIENT

DRUGS (6)
  1. WELLBUTRIN [Concomitant]
     Active Substance: BUPROPION HYDROCHLORIDE
     Indication: PRODUCT USED FOR UNKNOWN INDICATION
     Route: 065
     Dates: start: 201401
  2. BUPRENORPHINE/NALOXONE GENRIC [Suspect]
     Active Substance: BUPRENORPHINE\NALOXONE
     Indication: DRUG DEPENDENCE
     Dosage: CUTTING AND TAKING ABOUT 1/4 OF A TABLET DAILY
     Route: 060
     Dates: start: 2013
  3. SUBUTEX [Suspect]
     Active Substance: BUPRENORPHINE HYDROCHLORIDE
     Indication: PRODUCT USED FOR UNKNOWN INDICATION
     Dosage: DOSING DETAILS UNKNOWN
     Route: 065
  4. ZOFRAN [Suspect]
     Active Substance: ONDANSETRON HYDROCHLORIDE
     Indication: VOMITING
     Dosage: DOSING DETAILS UNKNOWN
     Route: 065
     Dates: start: 201310, end: 201310
  5. NICOTINE. [Concomitant]
     Active Substance: NICOTINE
     Indication: PRODUCT USED FOR UNKNOWN INDICATION
     Dosage: LESS THAN 1 A DAY AVERAGE
     Route: 055
     Dates: end: 201309
  6. BUPRENORPHINE/NALOXONE GENRIC [Suspect]
     Active Substance: BUPRENORPHINE\NALOXONE
     Dosage: CUTTING AND SELF TAPERED TO CURRENTLY 1/8 OF A TABLET DAILY
     Route: 060

REACTIONS (8)
  - Headache [Unknown]
  - Wrong technique in drug usage process [Not Recovered/Not Resolved]
  - Maternal exposure during pregnancy [Not Recovered/Not Resolved]
  - Vomiting [Recovering/Resolving]
  - Intentional underdose [Not Recovered/Not Resolved]
  - Pregnancy with contraceptive patch [None]
  - Weight decreased [Recovering/Resolving]
  - Substance abuse [Not Recovered/Not Resolved]

NARRATIVE: CASE EVENT DATE: 2013
